FAERS Safety Report 7866496-8 (Version None)
Quarter: 2011Q4

REPORT INFORMATION
  Report Type: 
  Country: None (occurrence: None)
  Receive Date: 20111028
  Receipt Date: 20110627
  Transmission Date: 20120403
  Serious: No
  Sender: FDA-Public Use
  Company Number: US-GLAXOSMITHKLINE-A0933245A

PATIENT
  Age: 59 Year
  Sex: Female

DRUGS (5)
  1. ADVAIR DISKUS 100/50 [Suspect]
     Indication: ASTHMA
     Dosage: 1PUFF TWICE PER DAY
     Route: 055
     Dates: start: 20090101, end: 20110301
  2. ADVAIR DISKUS 100/50 [Suspect]
     Route: 055
     Dates: start: 20110501, end: 20110624
  3. ADVAIR DISKUS 100/50 [Suspect]
     Route: 055
     Dates: start: 20100101, end: 20110624
  4. XANAX [Concomitant]
  5. OXYCODONE HCL [Concomitant]

REACTIONS (6)
  - VISUAL IMPAIRMENT [None]
  - BLOOD PRESSURE INCREASED [None]
  - EYELID PAIN [None]
  - PAIN IN EXTREMITY [None]
  - GROIN PAIN [None]
  - EYE DISORDER [None]
